FAERS Safety Report 10877194 (Version 2)
Quarter: 2015Q2

REPORT INFORMATION
  Report Type: Spontaneous
  Country: US (occurrence: US)
  Receive Date: 20150302
  Receipt Date: 20150616
  Transmission Date: 20150821
  Serious: Yes (Death, Other)
  Sender: FDA-Public Use
  Company Number: US-ASTRAZENECA-2015SE18974

PATIENT
  Age: 674 Month
  Sex: Male
  Weight: 72.6 kg

DRUGS (46)
  1. LASIX [Concomitant]
     Active Substance: FUROSEMIDE
     Route: 048
     Dates: start: 20110707
  2. ASPIRIN. [Concomitant]
     Active Substance: ASPIRIN
     Route: 048
     Dates: start: 20150119
  3. MECLIZINE [Concomitant]
     Active Substance: MECLIZINE\MECLIZINE HYDROCHLORIDE
     Route: 048
     Dates: start: 20130215
  4. RELAFEN [Concomitant]
     Active Substance: NABUMETONE
     Dosage: 500-1000 MG, TWO TIMES A DAY
     Route: 048
     Dates: start: 20130215
  5. FENTANYL. [Concomitant]
     Active Substance: FENTANYL
     Dates: start: 20130208
  6. BYETTA [Suspect]
     Active Substance: EXENATIDE
     Indication: TYPE 2 DIABETES MELLITUS
     Route: 065
     Dates: start: 20111220, end: 20120914
  7. BYETTA [Suspect]
     Active Substance: EXENATIDE
     Indication: TYPE 2 DIABETES MELLITUS
     Route: 058
     Dates: start: 20120117
  8. METOPROLOL TARTRATE. [Concomitant]
     Active Substance: METOPROLOL TARTRATE
     Route: 048
     Dates: start: 20110707
  9. THORAZINE [Concomitant]
     Active Substance: CHLORPROMAZINE
     Route: 048
     Dates: start: 20130215
  10. PROMETHAZINE [Concomitant]
     Active Substance: PROMETHAZINE\PROMETHAZINE HYDROCHLORIDE
     Route: 048
     Dates: start: 20130215
  11. CRESTOR [Concomitant]
     Active Substance: ROSUVASTATIN CALCIUM
     Dates: start: 20050324
  12. LISINOPRIL. [Concomitant]
     Active Substance: LISINOPRIL
     Route: 048
     Dates: start: 20111206
  13. PROCHLORPERAZINE. [Concomitant]
     Active Substance: PROCHLORPERAZINE
     Route: 048
     Dates: start: 20130215
  14. CARAFATE [Concomitant]
     Active Substance: SUCRALFATE
     Dosage: 1 GM/ 10 ML, EVERY SIX HOURS
     Route: 048
     Dates: start: 20130215
  15. EFFIENT [Concomitant]
     Active Substance: PRASUGREL HYDROCHLORIDE
     Dates: start: 20110707
  16. PROTONIX [Concomitant]
     Active Substance: PANTOPRAZOLE SODIUM
     Route: 048
     Dates: start: 20130215
  17. VICODIN [Concomitant]
     Active Substance: ACETAMINOPHEN\HYDROCODONE BITARTRATE
     Dosage: 5 MG/ 500 MG, EVERY FOUR HOURS
     Route: 048
     Dates: start: 20130215
  18. NEURONTIN [Concomitant]
     Active Substance: GABAPENTIN
     Route: 048
     Dates: start: 20130215
  19. HYDROMORPHONE [Concomitant]
     Active Substance: HYDROMORPHONE
     Route: 048
     Dates: start: 20130215
  20. SIMETHICONE [Concomitant]
     Active Substance: DIMETHICONE\SILICON DIOXIDE\SIMETHICONE
     Route: 048
     Dates: start: 20130215
  21. DRONABINOL. [Concomitant]
     Active Substance: DRONABINOL
     Route: 048
     Dates: start: 20130215
  22. BACTRIM [Concomitant]
     Active Substance: SULFAMETHOXAZOLE\TRIMETHOPRIM
     Dosage: 800/160, ONE TABLET, TWO TIMES A ADAY
     Dates: start: 20130208
  23. ZANTAC [Concomitant]
     Active Substance: RANITIDINE HYDROCHLORIDE
     Route: 048
     Dates: start: 20130215
  24. REGLAN [Concomitant]
     Active Substance: METOCLOPRAMIDE HYDROCHLORIDE
     Route: 048
     Dates: start: 20130215
  25. MYCOSTATIN [Concomitant]
     Active Substance: NYSTATIN
     Dosage: 100000 UNITS/ ML, FOUR ML, FOUR TIMES A DAY
     Dates: start: 20130215
  26. MYCELEX [Concomitant]
     Active Substance: CLOTRIMAZOLE
     Dosage: FIVE TIMES A DAY
     Dates: start: 20130215
  27. IBUPROFEN. [Concomitant]
     Active Substance: IBUPROFEN
     Dosage: 200-800 MG, EVERY SIX HOURS
     Route: 048
     Dates: start: 20130215
  28. NORTRIPTYLINE [Concomitant]
     Active Substance: NORTRIPTYLINE
     Dosage: 10-50 MG, AT NIGHT
     Route: 048
     Dates: start: 20130215
  29. PYRIDIUM [Concomitant]
     Active Substance: PHENAZOPYRIDINE
     Dosage: 100-200 MG,THREE TIMES A DAY
     Route: 048
     Dates: start: 20130215
  30. HALDOL [Concomitant]
     Active Substance: HALOPERIDOL
     Route: 048
     Dates: start: 20130215
  31. SENNA [Concomitant]
     Active Substance: SENNA LEAF\SENNOSIDES\SENNOSIDES A AND B
     Dosage: 8.2/ 50 MG, ONE TO FIVE TABLETS , TWO TIMES A DAY
     Route: 048
     Dates: start: 20130215
  32. PROPRANOLOL [Concomitant]
     Active Substance: PROPRANOLOL\PROPRANOLOL HYDROCHLORIDE
     Dates: start: 20130208
  33. ONDANSETRON HCL / ZOFRAN [Concomitant]
     Dates: start: 20121024
  34. GLYBURIDE. [Concomitant]
     Active Substance: GLYBURIDE
     Route: 048
     Dates: start: 20150119
  35. DEXAMETHASONE. [Concomitant]
     Active Substance: DEXAMETHASONE
     Dosage: 2-4 MG, TWO TIMES A ADAY
     Route: 048
     Dates: start: 20130215
  36. DULCOLAX [Concomitant]
     Active Substance: BISACODYL OR DOCUSATE SODIUM
     Route: 048
     Dates: start: 20130215
  37. ENULOSE [Concomitant]
     Active Substance: LACTULOSE
     Dosage: 15-30 ML, EVERY EIGHT HOURS
     Route: 048
     Dates: start: 20130215
  38. BYETTA [Suspect]
     Active Substance: EXENATIDE
     Indication: TYPE 2 DIABETES MELLITUS
     Route: 058
     Dates: start: 20111220
  39. PRAVASTATIN/ PRAVACOL [Concomitant]
     Route: 048
     Dates: start: 20110707
  40. TYLENOL [Concomitant]
     Active Substance: ACETAMINOPHEN
     Route: 048
     Dates: start: 20130215
  41. HYDROCORTISONE. [Concomitant]
     Active Substance: HYDROCORTISONE
     Dosage: 10-50 MG, AT NIGHT
     Route: 048
     Dates: start: 20130215
  42. RESTORIL [Concomitant]
     Active Substance: TEMAZEPAM
     Dosage: 15-30 MG, AT NIGHT
     Route: 048
     Dates: start: 20130215
  43. ATIVAN [Concomitant]
     Active Substance: LORAZEPAM
     Dosage: 0.5 MG, FOUR TABLETS, EVERY FOUR HOURS
     Route: 048
     Dates: start: 20130215
  44. TRAZODONE [Concomitant]
     Active Substance: TRAZODONE HYDROCHLORIDE
     Dates: start: 20121023
  45. BETHANECHOL [Concomitant]
     Active Substance: BETHANECHOL
     Dosage: 10-50 MG,TWO TO FOURTIMES A DAY
     Route: 048
     Dates: start: 20130215
  46. DOCUSATE [Concomitant]
     Active Substance: DOCUSATE
     Dates: start: 20130213

REACTIONS (5)
  - Metastases to liver [Unknown]
  - Pancreatic carcinoma metastatic [Fatal]
  - Jaundice cholestatic [Unknown]
  - Metastases to peritoneum [Unknown]
  - Malignant ascites [Unknown]

NARRATIVE: CASE EVENT DATE: 201209
